FAERS Safety Report 6239714-X (Version None)
Quarter: 2009Q2

REPORT INFORMATION
  Report Type: 
  Country: None (occurrence: None)
  Receive Date: 20090619
  Receipt Date: 20090607
  Transmission Date: 20091009
  Serious: Yes (Life-Threatening)
  Sender: FDA-Public Use
  Company Number: CERZ-1000669

PATIENT
  Age: 23 Year
  Sex: Male
  Weight: 60 kg

DRUGS (2)
  1. CEREZYME [Suspect]
     Indication: GAUCHER'S DISEASE
     Dosage: 3600 IU, Q2W, INTRAVENOUS
     Route: 042
     Dates: start: 20080318, end: 20090315
  2. CEREZYME [Suspect]
     Indication: GAUCHER'S DISEASE
     Dosage: 3600 IU, Q2W, INTRAVENOUS
     Route: 042
     Dates: start: 20090412, end: 20090526

REACTIONS (10)
  - ABDOMINAL PAIN [None]
  - CHEST DISCOMFORT [None]
  - CONJUNCTIVAL HYPERAEMIA [None]
  - DYSPNOEA [None]
  - HYPOTENSION [None]
  - INFUSION RELATED REACTION [None]
  - MUSCLE SPASMS [None]
  - RASH ERYTHEMATOUS [None]
  - RESPIRATORY DISTRESS [None]
  - SYNCOPE [None]
